FAERS Safety Report 17862825 (Version 1)
Quarter: 2020Q2

REPORT INFORMATION
  Report Type: Spontaneous
  Country: US (occurrence: US)
  Receive Date: 20200604
  Receipt Date: 20200604
  Transmission Date: 20200714
  Serious: No
  Sender: FDA-Public Use
  Company Number: US-FOUNDATIONCONSUMERHC-2020-US-006456

PATIENT
  Age: 31 Year
  Sex: Female
  Weight: 80.74 kg

DRUGS (5)
  1. UNSPECIFIED ANTIBIOTIC [Suspect]
     Active Substance: UNSPECIFIED INGREDIENT
     Dates: start: 20200303, end: 20200313
  2. UNSPECIFIED VITAMINS [Concomitant]
     Active Substance: VITAMINS
  3. PLAN B ONE-STEP [Suspect]
     Active Substance: LEVONORGESTREL
     Indication: POST COITAL CONTRACEPTION
     Dosage: 1.5MG X2 DOSES
     Route: 048
     Dates: end: 20200309
  4. ALBUTEROL INHALER [Concomitant]
     Active Substance: ALBUTEROL
  5. LEVOTHYROXINE. [Concomitant]
     Active Substance: LEVOTHYROXINE

REACTIONS (3)
  - Menstruation delayed [Recovered/Resolved]
  - Vaginal haemorrhage [Not Recovered/Not Resolved]
  - Nausea [Not Recovered/Not Resolved]

NARRATIVE: CASE EVENT DATE: 20200324
